FAERS Safety Report 10501975 (Version 1)
Quarter: 2014Q4

REPORT INFORMATION
  Report Type: Report from Study
  Country: US (occurrence: US)
  Receive Date: 20141007
  Receipt Date: 20141007
  Transmission Date: 20150528
  Serious: Yes (Hospitalization)
  Sender: FDA-Public Use
  Company Number: PHHY2014US127728

PATIENT
  Age: 67 Year
  Sex: Male

DRUGS (5)
  1. OXALIPLATIN. [Suspect]
     Active Substance: OXALIPLATIN
     Indication: COLORECTAL CANCER METASTATIC
     Dosage: 85 MG/M2, 1 IN 2 WKS
     Route: 042
     Dates: start: 20140917, end: 20140930
  2. BEVACIZUMAB [Suspect]
     Active Substance: BEVACIZUMAB
     Indication: COLORECTAL CANCER METASTATIC
     Dosage: 5 MG/KG, 1 IN 2 WKS
     Route: 042
     Dates: start: 20140917, end: 20140930
  3. LEUCOVORIN CALCIUM. [Suspect]
     Active Substance: LEUCOVORIN CALCIUM
     Indication: COLORECTAL CANCER METASTATIC
     Dosage: 400 MG/M2, 1 IN 2 WKS
     Route: 042
     Dates: start: 20140917, end: 20140930
  4. 5-FLUOROURACIL [Suspect]
     Active Substance: FLUOROURACIL
     Dosage: 400 MG/M2, 1 IN 2 WKS
     Route: 040
     Dates: start: 20140917, end: 20140930
  5. 5-FLUOROURACIL [Suspect]
     Active Substance: FLUOROURACIL
     Indication: COLORECTAL CANCER METASTATIC
     Dosage: 2400 MG/M2, 1 IN 2 WKS
     Route: 042
     Dates: start: 20140917, end: 20140917

REACTIONS (10)
  - Sinus bradycardia [Unknown]
  - Troponin increased [Unknown]
  - Electrocardiogram abnormal [Unknown]
  - Chest pain [Recovered/Resolved]
  - Left atrial dilatation [Unknown]
  - Left ventricular hypertrophy [Unknown]
  - Hyperhidrosis [Unknown]
  - Electrocardiogram QRS complex abnormal [Unknown]
  - Echocardiogram abnormal [Unknown]
  - Diastolic dysfunction [Unknown]

NARRATIVE: CASE EVENT DATE: 20140918
